FAERS Safety Report 16156808 (Version 1)
Quarter: 2019Q2

REPORT INFORMATION
  Report Type: Spontaneous
  Country: US (occurrence: US)
  Receive Date: 20190228
  Receipt Date: 20190228
  Transmission Date: 20190711
  Serious: No
  Sender: FDA-Public Use
  Company Number: None

PATIENT
  Age: 68 Year
  Sex: Female

DRUGS (3)
  1. LETAIRIS [Suspect]
     Active Substance: AMBRISENTAN
     Indication: PULMONARY ARTERIAL HYPERTENSION
     Route: 048
     Dates: start: 20110826
  2. LETAIRIS [Suspect]
     Active Substance: AMBRISENTAN
     Indication: CONNECTIVE TISSUE DISORDER
     Route: 048
     Dates: start: 20110826
  3. LETAIRIS [Suspect]
     Active Substance: AMBRISENTAN
     Indication: HEART DISEASE CONGENITAL
     Route: 048
     Dates: start: 20110826

REACTIONS (9)
  - Cough [None]
  - Pyrexia [None]
  - Diarrhoea [None]
  - Oropharyngeal pain [None]
  - Fatigue [None]
  - Nasal congestion [None]
  - Dysphonia [None]
  - Influenza [None]
  - Nausea [None]

NARRATIVE: CASE EVENT DATE: 20190127
